FAERS Safety Report 13853485 (Version 1)
Quarter: 2017Q3

REPORT INFORMATION
  Report Type: Spontaneous
  Country: US (occurrence: US)
  Receive Date: 20170809
  Receipt Date: 20170809
  Transmission Date: 20171127
  Serious: Yes (Other)
  Sender: FDA-Public Use
  Company Number: US-PFIZER INC-2017337336

PATIENT
  Age: 76 Year
  Sex: Female

DRUGS (1)
  1. METHOTREXATE SODIUM. [Suspect]
     Active Substance: METHOTREXATE SODIUM
     Dosage: 20 MG, WEEKLY (8 TABS PO ON THE SAME DAY EACH WEEK)
     Route: 048

REACTIONS (17)
  - Hypoaesthesia [Unknown]
  - Osteoarthritis [Unknown]
  - Fatigue [Unknown]
  - Arthralgia [Unknown]
  - Pain [Unknown]
  - Musculoskeletal pain [Unknown]
  - Musculoskeletal disorder [Unknown]
  - Back pain [Unknown]
  - Joint stiffness [Unknown]
  - Spinal fracture [Unknown]
  - Pain in extremity [Unknown]
  - Musculoskeletal stiffness [Unknown]
  - Osteopenia [Unknown]
  - Anaemia [Unknown]
  - Exostosis [Unknown]
  - Spinal osteoarthritis [Unknown]
  - Peripheral swelling [Unknown]
